FAERS Safety Report 7486479-X (Version None)
Quarter: 2011Q2

REPORT INFORMATION
  Report Type: 
  Country: None (occurrence: None)
  Receive Date: 20110517
  Receipt Date: 20100512
  Transmission Date: 20111010
  Serious: No
  Sender: FDA-Public Use
  Company Number: US-NOVEN-ALL1-2010-02810

PATIENT

DRUGS (3)
  1. DAYTRANA [Suspect]
     Dosage: 20 MG, 1X/DAY:QD
     Route: 062
     Dates: start: 20100418, end: 20100424
  2. TRAZODONE HCL [Concomitant]
     Dosage: 1/2 OF A 50 MG TABLET NIGHTLY
     Route: 048
     Dates: start: 20100301
  3. CITALOPRAM HYDROBROMIDE [Concomitant]
     Dosage: 30 MG, 1X/DAY:QD
     Route: 048
     Dates: start: 20091201

REACTIONS (3)
  - IMPULSIVE BEHAVIOUR [None]
  - APPETITE DISORDER [None]
  - AGITATION [None]
